FAERS Safety Report 9474206 (Version 1)
Quarter: 2013Q3

REPORT INFORMATION
  Report Type: Report from Study
  Country: FR (occurrence: FR)
  Receive Date: 20130823
  Receipt Date: 20130823
  Transmission Date: 20140515
  Serious: Yes (Other)
  Sender: FDA-Public Use
  Company Number: PHHY2012FR129077

PATIENT
  Age: 69 Year
  Sex: Female

DRUGS (6)
  1. NEORAL [Suspect]
     Dates: start: 20100918, end: 20100930
  2. MYFORTIC [Suspect]
     Dates: start: 20101223
  3. CERTICAN [Suspect]
     Dates: start: 20110402
  4. SOLUPRED [Suspect]
     Dates: start: 20100616, end: 20110504
  5. SOLUPRED [Suspect]
     Dates: start: 20110507
  6. SOLUMEDROL [Suspect]
     Dates: start: 20110504, end: 20110506

REACTIONS (1)
  - Cardiomegaly [Unknown]
